FAERS Safety Report 5087465-X (Version None)
Quarter: 2006Q3

REPORT INFORMATION
  Report Type: 
  Country: None (occurrence: None)
  Receive Date: 20060824
  Receipt Date: 20060630
  Transmission Date: 20061208
  Serious: Yes (Life-Threatening, Hospitalization, Other)
  Sender: FDA-Public Use
  Company Number: GB-BRISTOL-MYERS SQUIBB COMPANY-13430210

PATIENT
  Age: 46 Year
  Sex: Male
  Weight: 50 kg

DRUGS (6)
  1. SUSTIVA [Suspect]
     Indication: HIV INFECTION
     Route: 048
     Dates: start: 20060628, end: 20060629
  2. KIVEXA [Suspect]
     Indication: HIV INFECTION
     Dosage: ABACAVIR 600MG / LAMIVUDINE 300 MG
     Route: 048
     Dates: start: 20060628, end: 20060629
  3. SEPTRIN [Concomitant]
     Indication: INFECTION PROPHYLAXIS
  4. DOXYCYCLINE [Concomitant]
     Indication: LOWER RESPIRATORY TRACT INFECTION
     Route: 048
     Dates: start: 20060524, end: 20060531
  5. CO-TRIMOXAZOLE [Concomitant]
     Indication: PNEUMOCYSTIS JIROVECI PNEUMONIA
     Route: 048
     Dates: start: 20060608, end: 20060629
  6. FLUCONAZOLE [Concomitant]
     Indication: ORAL CANDIDIASIS
     Route: 048
     Dates: start: 20060608, end: 20060615

REACTIONS (8)
  - HYPOTENSION [None]
  - HYPOXIA [None]
  - LIVER FUNCTION TEST ABNORMAL [None]
  - LUNG INJURY [None]
  - OXYGEN SATURATION DECREASED [None]
  - PYREXIA [None]
  - TACHYCARDIA [None]
  - TACHYPNOEA [None]
